FAERS Safety Report 20133744 (Version 1)
Quarter: 2021Q4

REPORT INFORMATION
  Report Type: Spontaneous
  Country: US (occurrence: US)
  Receive Date: 20211201
  Receipt Date: 20211201
  Transmission Date: 20220303
  Serious: Yes (Other)
  Sender: FDA-Public Use
  Company Number: US-NOVARTISPH-NVSC2021US266155

PATIENT
  Sex: Male

DRUGS (3)
  1. DOCETAXEL [Suspect]
     Active Substance: DOCETAXEL
     Indication: Hormone-refractory prostate cancer
     Dosage: UNK
     Route: 065
  2. ENZALUTAMIDE [Suspect]
     Active Substance: ENZALUTAMIDE
     Indication: Hormone-refractory prostate cancer
     Dosage: UNK
     Route: 065
  3. CABAZITAXEL [Suspect]
     Active Substance: CABAZITAXEL
     Indication: Hormone-refractory prostate cancer
     Dosage: UNK
     Route: 065

REACTIONS (2)
  - Prostate cancer metastatic [Unknown]
  - Malignant neoplasm progression [Unknown]
